FAERS Safety Report 16251256 (Version 1)
Quarter: 2019Q2

REPORT INFORMATION
  Report Type: Report from Study
  Country: IT (occurrence: IT)
  Receive Date: 20190429
  Receipt Date: 20190429
  Transmission Date: 20190711
  Serious: Yes (Hospitalization)
  Sender: FDA-Public Use
  Company Number: IT-MYLANLABS-2019M1039114

PATIENT
  Age: 50 Year
  Sex: Male

DRUGS (2)
  1. VOLTFAST                           /00372302/ [Suspect]
     Active Substance: DICLOFENAC SODIUM
     Indication: ARTHRALGIA
     Dosage: 1 DOSAGE FORM, TOTAL
     Route: 048
     Dates: start: 20181031, end: 20181031
  2. BRUFEN [Suspect]
     Active Substance: IBUPROFEN
     Indication: ARTHRALGIA
     Dosage: 1 DOSAGE FORM, TOTAL
     Route: 048
     Dates: start: 20181101, end: 20181101

REACTIONS (3)
  - Pruritus [Recovered/Resolved]
  - Erythema [Recovered/Resolved]
  - Oedema peripheral [Recovered/Resolved]

NARRATIVE: CASE EVENT DATE: 20181101
